FAERS Safety Report 5225014-3 (Version None)
Quarter: 2007Q1

REPORT INFORMATION
  Report Type: 
  Country: None (occurrence: None)
  Receive Date: 20070126
  Receipt Date: 20070122
  Transmission Date: 20070707
  Serious: No
  Sender: FDA-Public Use
  Company Number: 2007-152917-NL

PATIENT
  Age: 13 Month
  Sex: Male

DRUGS (1)
  1. CHORIONIC GONADOTROPIN [Suspect]
     Indication: CRYPTORCHISM
     Dosage: 1500 IU ONCE INTRAMUSCULAR
     Route: 030
     Dates: start: 20070109

REACTIONS (5)
  - INFLAMMATION [None]
  - OTITIS MEDIA [None]
  - PHARMACEUTICAL PRODUCT COMPLAINT [None]
  - PYREXIA [None]
  - TYMPANIC MEMBRANE DISORDER [None]
